FAERS Safety Report 8337562-8 (Version None)
Quarter: 2012Q2

REPORT INFORMATION
  Report Type: 
  Country: None (occurrence: None)
  Receive Date: 20120504
  Receipt Date: 19840802
  Transmission Date: 20120825
  Serious: Yes (Death, Other)
  Sender: FDA-Public Use
  Company Number: FR-ROCHE-4443

PATIENT
  Sex: Male
  Weight: 72.1 kg

DRUGS (5)
  1. CORDARONE [Concomitant]
     Route: 048
     Dates: start: 19820601, end: 19830929
  2. FONZYLANE [Concomitant]
     Route: 048
     Dates: start: 19820615, end: 19830929
  3. TICLOPIDINE HCL [Suspect]
     Indication: ARTERIAL DISORDER
     Route: 048
     Dates: start: 19830829, end: 19830929
  4. ISOSORBIDE DINITRATE [Concomitant]
     Route: 048
     Dates: start: 19820601, end: 19830929
  5. GENERIC COMPONENT(S) NOT KNOWN [Concomitant]
     Route: 048
     Dates: start: 19820601, end: 19830929

REACTIONS (2)
  - SEPTIC SHOCK [None]
  - BONE MARROW FAILURE [None]
